FAERS Safety Report 7793620-8 (Version None)
Quarter: 2011Q4

REPORT INFORMATION
  Report Type: 
  Country: None (occurrence: None)
  Receive Date: 20111003
  Receipt Date: 20110919
  Transmission Date: 20120403
  Serious: Yes (Hospitalization)
  Sender: FDA-Public Use
  Company Number: IT-BAYER-2011-088823

PATIENT
  Age: 18 Year
  Sex: Female

DRUGS (4)
  1. LORAZEPAM [Suspect]
     Indication: SUICIDE ATTEMPT
     Dosage: UNK
     Dates: start: 20110401, end: 20110401
  2. IBRUPROFEN [Suspect]
     Indication: SUICIDE ATTEMPT
     Dosage: 6000 MG, ONCE
     Route: 048
     Dates: start: 20110401, end: 20110401
  3. ACETAMINOPHEN [Suspect]
     Indication: SUICIDE ATTEMPT
     Dosage: 5000 MG, ONCE
     Route: 048
     Dates: start: 20110401, end: 20110401
  4. ASPIRIN [Suspect]
     Indication: SUICIDE ATTEMPT
     Dosage: 3000 MG, ONCE
     Route: 048
     Dates: start: 20110401, end: 20110401

REACTIONS (1)
  - HOSPITALISATION [None]
